FAERS Safety Report 7154475-8 (Version None)
Quarter: 2010Q4

REPORT INFORMATION
  Report Type: 
  Country: None (occurrence: None)
  Receive Date: 20101213
  Receipt Date: 20101129
  Transmission Date: 20110411
  Serious: Yes (Other)
  Sender: FDA-Public Use
  Company Number: NL-AMGEN-NLDSP2010007245

PATIENT

DRUGS (6)
  1. ENBREL [Suspect]
     Dosage: 50 MG, WEEKLY
     Dates: start: 20100606
  2. TRIAMTERENE [Suspect]
     Dosage: UNK
  3. METHOTREXATE [Concomitant]
  4. FOLIC ACID [Concomitant]
  5. LOSARTAN [Concomitant]
  6. METOPROLOL [Concomitant]

REACTIONS (4)
  - DIZZINESS [None]
  - DYSPNOEA [None]
  - EPISTAXIS [None]
  - RENAL DISORDER [None]
